FAERS Safety Report 11387489 (Version 1)
Quarter: 2015Q3

REPORT INFORMATION
  Report Type: Spontaneous
  Country: DE (occurrence: DE)
  Receive Date: 20150817
  Receipt Date: 20150817
  Transmission Date: 20151125
  Serious: Yes (Other)
  Sender: FDA-Public Use
  Company Number: DE-BIOGENIDEC-2014BI099310

PATIENT
  Age: 26 Year
  Sex: Female
  Weight: 86 kg

DRUGS (5)
  1. FEMIBION [Concomitant]
     Active Substance: VITAMINS
     Indication: PREGNANCY
     Route: 048
     Dates: start: 201408, end: 201507
  2. TECFIDERA [Suspect]
     Active Substance: DIMETHYL FUMARATE
     Indication: MULTIPLE SCLEROSIS
     Dates: start: 201507
  3. VIGANTOLETTEN [Concomitant]
     Active Substance: CHOLECALCIFEROL
     Indication: PREGNANCY
     Dates: start: 201408, end: 201507
  4. VITAMIN D [Concomitant]
     Active Substance: CHOLECALCIFEROL
     Indication: PREGNANCY
     Dates: start: 201408, end: 201507
  5. TECFIDERA [Suspect]
     Active Substance: DIMETHYL FUMARATE
     Indication: MULTIPLE SCLEROSIS
     Route: 048
     Dates: start: 20140701, end: 201408

REACTIONS (2)
  - Symphysiolysis [Recovered/Resolved]
  - Maternal exposure during pregnancy [Recovered/Resolved]

NARRATIVE: CASE EVENT DATE: 20150420
